FAERS Safety Report 17342675 (Version 2)
Quarter: 2024Q3

REPORT INFORMATION
  Report Type: Spontaneous
  Country: SE (occurrence: SE)
  Receive Date: 20200129
  Receipt Date: 20240924
  Transmission Date: 20241016
  Serious: Yes (Other)
  Sender: MYLAN
  Company Number: SE-PFIZER INC-2019497678

PATIENT
  Age: 68 Year
  Sex: Female

DRUGS (6)
  1. INDOMETHACIN [Interacting]
     Active Substance: INDOMETHACIN
     Indication: Product used for unknown indication
     Dosage: UNK
     Route: 065
  2. INDOMETHACIN [Interacting]
     Active Substance: INDOMETHACIN
     Dosage: UNK
     Route: 065
  3. CIPROFLOXACIN [Interacting]
     Active Substance: CIPROFLOXACIN
     Indication: Osteomyelitis salmonella
     Dosage: 500 MILLIGRAM, BID 2X/DAY (BID WAS INITIATED)
     Route: 065
  4. NAPROXEN [Interacting]
     Active Substance: NAPROXEN
     Indication: Analgesic intervention supportive therapy
     Dosage: 500 MILLIGRAM, BID 2X/DAY (BID WAS CONTINUED)
     Route: 065
  5. CHLOROQUINE [Interacting]
     Active Substance: CHLOROQUINE
     Indication: Analgesic intervention supportive therapy
     Dosage: 250 MILLIGRAM, QD DAILY (MORE THAN FIVE YEARS)
     Route: 065
  6. CHLOROQUINE [Interacting]
     Active Substance: CHLOROQUINE
     Indication: Collagen disorder

REACTIONS (13)
  - Toxicity to various agents [Recovering/Resolving]
  - Decreased vibratory sense [Recovering/Resolving]
  - Peripheral swelling [Recovering/Resolving]
  - Nerve degeneration [Recovering/Resolving]
  - Erythema [Recovering/Resolving]
  - Pain in extremity [Recovering/Resolving]
  - Dizziness [Recovering/Resolving]
  - Syncope [Recovering/Resolving]
  - Drug interaction [Recovering/Resolving]
  - Systemic lupus erythematosus [Unknown]
  - Tremor [Unknown]
  - Anxiety [Unknown]
  - Polyneuropathy [Unknown]
